FAERS Safety Report 14335899 (Version 2)
Quarter: 2018Q1

REPORT INFORMATION
  Report Type: Spontaneous
  Country: US (occurrence: US)
  Receive Date: 20171229
  Receipt Date: 20180214
  Transmission Date: 20180509
  Serious: Yes (Death, Other)
  Sender: FDA-Public Use
  Company Number: US-TAIHO ONCOLOGY INC-EU-2017-01536

PATIENT
  Age: 59 Year
  Sex: Female
  Weight: 79.9 kg

DRUGS (14)
  1. LISINOPRIL. [Concomitant]
     Active Substance: LISINOPRIL
     Route: 048
  2. LOVASTATIN. [Concomitant]
     Active Substance: LOVASTATIN
     Dosage: WITH THE EVENING MEAL
     Route: 048
  3. LONSURF [Suspect]
     Active Substance: TIPIRACIL HYDROCHLORIDE\TRIFLURIDINE
     Indication: COLON CANCER
     Route: 048
     Dates: start: 20171104
  4. LOVENOX [Concomitant]
     Active Substance: ENOXAPARIN SODIUM
     Route: 058
  5. AMLODIPINE [Concomitant]
     Active Substance: AMLODIPINE BESYLATE
     Route: 048
  6. LOMOTIL [Concomitant]
     Active Substance: ATROPINE SULFATE\DIPHENOXYLATE HYDROCHLORIDE
     Dosage: 2.5-0.025 MG
     Route: 048
  7. FENOFIBRATE. [Concomitant]
     Active Substance: FENOFIBRATE
     Route: 048
  8. LEVOTHYROXINE. [Concomitant]
     Active Substance: LEVOTHYROXINE
     Route: 048
  9. LONSURF [Suspect]
     Active Substance: TIPIRACIL HYDROCHLORIDE\TRIFLURIDINE
     Indication: METASTASES TO LIVER
  10. ASCORBIC ACID. [Concomitant]
     Active Substance: ASCORBIC ACID
     Dosage: NI
  11. MORPHINE SULFATE. [Concomitant]
     Active Substance: MORPHINE SULFATE
     Dosage: AS NEEDED
  12. ONDANSETRON [Concomitant]
     Active Substance: ONDANSETRON
     Dosage: 30 MIN BEFORE START CHEMO THEN 1 TAB EIGHT HOURS AFTER FIRST DOSE
     Route: 048
  13. SERTRALINE [Concomitant]
     Active Substance: SERTRALINE HYDROCHLORIDE
     Route: 048
  14. HYDROXYZINE HYDROCHLORIDE. [Concomitant]
     Active Substance: HYDROXYZINE HYDROCHLORIDE
     Route: 048

REACTIONS (20)
  - Lymphadenopathy [Unknown]
  - Cancer pain [Unknown]
  - Nausea [Unknown]
  - Blood pressure decreased [Unknown]
  - Decreased appetite [Unknown]
  - Ascites [Unknown]
  - Dizziness [Unknown]
  - Early satiety [Unknown]
  - Blood bilirubin increased [Unknown]
  - Increased tendency to bruise [Unknown]
  - Bile duct obstruction [Unknown]
  - Visual impairment [Unknown]
  - Vertigo [Unknown]
  - Disease progression [Fatal]
  - Weight decreased [Unknown]
  - Faeces pale [Unknown]
  - Thirst [Unknown]
  - Asthenia [Unknown]
  - Epistaxis [Unknown]
  - Constipation [Unknown]

NARRATIVE: CASE EVENT DATE: 201710
